FAERS Safety Report 15309516 (Version 1)
Quarter: 2018Q3

REPORT INFORMATION
  Report Type: Spontaneous
  Country: US (occurrence: US)
  Receive Date: 20180812
  Receipt Date: 20180812
  Transmission Date: 20181010
  Serious: Yes (Hospitalization)
  Sender: FDA-Public Use
  Company Number: None

PATIENT
  Age: 61 Year
  Sex: Female
  Weight: 90 kg

DRUGS (1)
  1. KETOROLAC TROMETHAMINE. [Suspect]
     Active Substance: KETOROLAC TROMETHAMINE
     Indication: HYPERTENSION
     Dosage: ?          QUANTITY:1 INJECTION(S);?
     Route: 042
     Dates: start: 20180608, end: 20180608

REACTIONS (10)
  - Hypertension [None]
  - Injection site vesicles [None]
  - Pain in extremity [None]
  - Peripheral swelling [None]
  - Gait disturbance [None]
  - Liver injury [None]
  - Insomnia [None]
  - Abdominal pain upper [None]
  - Injection site pain [None]
  - Myalgia [None]

NARRATIVE: CASE EVENT DATE: 20180731
